FAERS Safety Report 5687399-3 (Version None)
Quarter: 2008Q1

REPORT INFORMATION
  Report Type: 
  Country: None (occurrence: None)
  Receive Date: 20080328
  Receipt Date: 20061201
  Transmission Date: 20080703
  Serious: No
  Sender: FDA-Public Use
  Company Number: US-BAYER-US-2006-037532

PATIENT
  Age: 48 Year
  Sex: Female

DRUGS (5)
  1. MIRENA [Suspect]
     Indication: VAGINAL HAEMORRHAGE
     Route: 015
     Dates: start: 20041101
  2. WELLBUTRIN [Concomitant]
  3. LEXAPRO [Concomitant]
     Indication: ANTIDEPRESSANT THERAPY
  4. PREVACID [Concomitant]
  5. CALCIUM [Concomitant]

REACTIONS (2)
  - LIBIDO DECREASED [None]
  - METRORRHAGIA [None]
